FAERS Safety Report 7571021-5 (Version None)
Quarter: 2011Q2

REPORT INFORMATION
  Report Type: 
  Country: None (occurrence: None)
  Receive Date: 20110624
  Receipt Date: 20110610
  Transmission Date: 20111010
  Serious: Yes (Congenital Anomaly)
  Sender: FDA-Public Use
  Company Number: SE-WATSON-2011-09180

PATIENT

DRUGS (4)
  1. PHENOBARBITAL TAB [Suspect]
     Indication: EPILEPSY
     Dosage: UNK
     Route: 064
  2. DIVALPROEX SODIUM [Suspect]
     Indication: EPILEPSY
     Dosage: UNK
     Route: 064
  3. CARBAMAZEPINE [Suspect]
     Indication: EPILEPSY
     Dosage: UNK
     Route: 064
  4. LAMOTRIGINE [Suspect]
     Indication: EPILEPSY
     Dosage: UNK
     Route: 064

REACTIONS (7)
  - NEURAL TUBE DEFECT [None]
  - CLEFT LIP AND PALATE [None]
  - POLYDACTYLY [None]
  - HEART DISEASE CONGENITAL [None]
  - KIDNEY MALFORMATION [None]
  - HYPOSPADIAS [None]
  - MULTIPLE CONGENITAL ABNORMALITIES [None]
